FAERS Safety Report 18129041 (Version 2)
Quarter: 2020Q3

REPORT INFORMATION
  Report Type: Spontaneous
  Country: TW (occurrence: TW)
  Receive Date: 20200810
  Receipt Date: 20200829
  Transmission Date: 20201103
  Serious: Yes (Hospitalization)
  Sender: FDA-Public Use
  Company Number: TW-ABBVIE-20K-153-3512521-00

PATIENT
  Age: 47 Year
  Sex: Male

DRUGS (18)
  1. HUMIRA [Suspect]
     Active Substance: ADALIMUMAB
     Indication: RHEUMATOID ARTHRITIS
     Route: 058
     Dates: start: 20170516, end: 20200707
  2. ARHEUMA [Concomitant]
     Indication: PRODUCT USED FOR UNKNOWN INDICATION
     Dates: start: 20200716, end: 20200718
  3. XIGDUO XR [Concomitant]
     Active Substance: DAPAGLIFLOZIN PROPANEDIOL\METFORMIN HYDROCHLORIDE
     Indication: PRODUCT USED FOR UNKNOWN INDICATION
     Dates: start: 20200716, end: 20200718
  4. ZANIDIP [Concomitant]
     Active Substance: LERCANIDIPINE HYDROCHLORIDE
     Indication: PRODUCT USED FOR UNKNOWN INDICATION
     Dates: start: 20200716, end: 20200718
  5. SOLU?MEDROL [Concomitant]
     Active Substance: METHYLPREDNISOLONE SODIUM SUCCINATE
     Indication: PRODUCT USED FOR UNKNOWN INDICATION
     Dates: start: 20200716, end: 20200718
  6. HARNALIDGE OCAS [Concomitant]
     Active Substance: TAMSULOSIN HYDROCHLORIDE
     Indication: PRODUCT USED FOR UNKNOWN INDICATION
  7. PRIVIGEN [Concomitant]
     Active Substance: HUMAN IMMUNOGLOBULIN G
     Indication: PRODUCT USED FOR UNKNOWN INDICATION
     Dates: start: 20200716, end: 20200718
  8. PREDNISOLONE. [Concomitant]
     Active Substance: PREDNISOLONE
     Indication: PRODUCT USED FOR UNKNOWN INDICATION
  9. METHOLON [Concomitant]
     Indication: PRODUCT USED FOR UNKNOWN INDICATION
     Dates: start: 20200716, end: 20200718
  10. CRESTOR [Concomitant]
     Active Substance: ROSUVASTATIN CALCIUM
     Indication: PRODUCT USED FOR UNKNOWN INDICATION
     Dates: start: 20200716, end: 20200718
  11. NORMAL SALINE [Concomitant]
     Active Substance: SODIUM CHLORIDE
     Indication: PRODUCT USED FOR UNKNOWN INDICATION
     Dosage: 1BAG/QD IVD
  12. PREDNISOLONE. [Concomitant]
     Active Substance: PREDNISOLONE
  13. SOLU?CORTEF [Concomitant]
     Active Substance: HYDROCORTISONE SODIUM SUCCINATE
     Indication: PRODUCT USED FOR UNKNOWN INDICATION
     Dates: start: 20200716, end: 20200718
  14. PREDNISOLONE. [Concomitant]
     Active Substance: PREDNISOLONE
  15. SANDIMMUN [Concomitant]
     Active Substance: CYCLOSPORINE
     Indication: PRODUCT USED FOR UNKNOWN INDICATION
     Dates: start: 20200716, end: 20200718
  16. FOXONE [Concomitant]
     Indication: PRODUCT USED FOR UNKNOWN INDICATION
     Dates: start: 20200716, end: 20200718
  17. MIKELAN LA [Concomitant]
     Active Substance: CARTEOLOL HYDROCHLORIDE
     Indication: PRODUCT USED FOR UNKNOWN INDICATION
     Dates: start: 20200716, end: 20200718
  18. CHLORPHENIRAMINE. [Concomitant]
     Active Substance: CHLORPHENIRAMINE
     Indication: PRODUCT USED FOR UNKNOWN INDICATION
     Dates: start: 20200716, end: 20200718

REACTIONS (5)
  - Retinal vasculitis [Recovered/Resolved]
  - Glaucoma [Unknown]
  - Vision blurred [Unknown]
  - Palindromic rheumatism [Unknown]
  - Musculoskeletal stiffness [Unknown]

NARRATIVE: CASE EVENT DATE: 2020
